FAERS Safety Report 21035888 (Version 3)
Quarter: 2022Q3

REPORT INFORMATION
  Report Type: Spontaneous
  Country: US (occurrence: US)
  Receive Date: 20220701
  Receipt Date: 20220928
  Transmission Date: 20221026
  Serious: No
  Sender: FDA-Public Use
  Company Number: US-SA-SAC20220701000343

PATIENT
  Age: 64 Year
  Sex: Male

DRUGS (6)
  1. FLOMAX [Suspect]
     Active Substance: TAMSULOSIN HYDROCHLORIDE
     Indication: Product used for unknown indication
     Dosage: UNK
  2. ORGOVYX [Suspect]
     Active Substance: RELUGOLIX
     Indication: Prostate cancer
     Dosage: 360 MG
     Route: 048
     Dates: start: 20220411
  3. ORGOVYX [Suspect]
     Active Substance: RELUGOLIX
     Dosage: 120 MG, QD
     Route: 048
     Dates: start: 20220412
  4. ORGOVYX [Suspect]
     Active Substance: RELUGOLIX
     Dosage: UNK
  5. ORGOVYX [Suspect]
     Active Substance: RELUGOLIX
     Dosage: UNK
  6. ORGOVYX [Suspect]
     Active Substance: RELUGOLIX
     Dosage: UNK

REACTIONS (16)
  - Balance disorder [Unknown]
  - Feeling abnormal [Unknown]
  - Muscle spasms [Unknown]
  - Testicular pain [Unknown]
  - Palpitations [Unknown]
  - Urine flow decreased [Unknown]
  - Thirst [Unknown]
  - Muscle atrophy [Unknown]
  - Testicular atrophy [Unknown]
  - Hot flush [Unknown]
  - Dizziness [Not Recovered/Not Resolved]
  - Insomnia [Unknown]
  - Asthenia [Unknown]
  - Arthralgia [Unknown]
  - Prostatic specific antigen increased [Unknown]
  - Product dose omission in error [Unknown]

NARRATIVE: CASE EVENT DATE: 20220411
